FAERS Safety Report 16663479 (Version 1)
Quarter: 2019Q3

REPORT INFORMATION
  Report Type: Spontaneous
  Country: US (occurrence: US)
  Receive Date: 20190802
  Receipt Date: 20190802
  Transmission Date: 20191004
  Serious: No
  Sender: FDA-Public Use
  Company Number: US-EXELIXIS-CABO-19021239

PATIENT
  Age: 47 Year
  Sex: Female
  Weight: 36.74 kg

DRUGS (1)
  1. COMETRIQ [Suspect]
     Active Substance: CABOZANTINIB S-MALATE
     Indication: THYROID CANCER
     Dosage: 140 MG, QD
     Dates: start: 201810, end: 20190512

REACTIONS (6)
  - Diarrhoea [Unknown]
  - Skin ulcer [Unknown]
  - Taste disorder [Unknown]
  - Nausea [Unknown]
  - Stomatitis [Unknown]
  - Weight decreased [Unknown]

NARRATIVE: CASE EVENT DATE: 201812
